FAERS Safety Report 8265152 (Version 2)
Quarter: 2013Q2

REPORT INFORMATION
  Report Type: Spontaneous
  Country: US (occurrence: US)
  Receive Date: 20111128
  Receipt Date: 20130527
  Transmission Date: 20140414
  Serious: Yes (Hospitalization, Other)
  Sender: FDA-Public Use
  Company Number: PHEH2011US009865

PATIENT
  Age: 63 Year
  Sex: Male
  Weight: 89.34 kg

DRUGS (5)
  1. ZOLEDRONIC ACID [Suspect]
     Indication: PLASMA CELL MYELOMA
     Dosage: 4 MG Q28 DAYS- 4 CYCLES
     Route: 042
     Dates: start: 20110401, end: 20110627
  2. BORTEZOMIB [Concomitant]
     Indication: PLASMA CELL MYELOMA
     Dosage: 3.3 MG (DAYS 1, 4, 8, 11, EVERY 28 DAYS)
     Route: 042
     Dates: start: 20110627, end: 20110718
  3. DEXAMETHASONE [Concomitant]
     Indication: PLASMA CELL MYELOMA
     Dosage: 20 MG (DAYS 1,2,4,.5,8,9,11,12)
     Route: 048
     Dates: start: 20110627, end: 20110718
  4. CYCLOPHOSPHAMIDE [Concomitant]
     Indication: PLASMA CELL MYELOMA
     Dosage: 650 MG (DAYS 1, 8, 15, 22)
     Route: 048
     Dates: start: 20110627, end: 20110718
  5. ANTIBIOTICS [Concomitant]
     Route: 048

REACTIONS (10)
  - Hyponatraemia [Recovered/Resolved]
  - Anaemia [Unknown]
  - Thrombocytopenia [Unknown]
  - Hypokalaemia [Recovered/Resolved]
  - Pyrexia [Recovered/Resolved]
  - Serratia sepsis [Recovering/Resolving]
  - Dehydration [Recovering/Resolving]
  - Asthenia [Recovering/Resolving]
  - Hypotension [Recovering/Resolving]
  - Syncope [Recovering/Resolving]
